FAERS Safety Report 9550751 (Version 2)
Quarter: 2014Q2

REPORT INFORMATION
  Report Type: Spontaneous
  Country: US (occurrence: US)
  Receive Date: 20130924
  Receipt Date: 20140402
  Transmission Date: 20141212
  Serious: No
  Sender: FDA-Public Use
  Company Number: US-SANOFI-AVENTIS-2013SA047647

PATIENT
  Age: 50 Year
  Sex: Male
  Weight: 86.2 kg

DRUGS (6)
  1. AUBAGIO [Suspect]
     Indication: MULTIPLE SCLEROSIS
     Route: 048
     Dates: start: 20130330
  2. LIPITOR [Concomitant]
  3. TEGRETOL [Concomitant]
  4. LISINOPRIL [Concomitant]
  5. VITAMIN D3 [Concomitant]
  6. FISH OIL [Concomitant]

REACTIONS (2)
  - Diarrhoea [Not Recovered/Not Resolved]
  - Cough [Unknown]
